FAERS Safety Report 20326574 (Version 1)
Quarter: 2022Q1

REPORT INFORMATION
  Report Type: Spontaneous
  Country: US (occurrence: US)
  Receive Date: 20220112
  Receipt Date: 20220112
  Transmission Date: 20220423
  Serious: Yes (Death, Hospitalization)
  Sender: FDA-Public Use
  Company Number: US-BAYER-2022A001184

PATIENT
  Age: 40 Year
  Sex: Male

DRUGS (2)
  1. ASPIRIN [Suspect]
     Active Substance: ASPIRIN
     Dosage: UNK
  2. CALCIUM [Concomitant]
     Active Substance: CALCIUM

REACTIONS (11)
  - Toxicity to various agents [Fatal]
  - Intentional overdose [Fatal]
  - Paranoia [Fatal]
  - Hallucination, visual [Fatal]
  - Vomiting [Fatal]
  - Agitation [Fatal]
  - Psychomotor hyperactivity [Fatal]
  - Aggression [Fatal]
  - Pneumothorax [Fatal]
  - Respiratory distress [Fatal]
  - Cardiac arrest [Fatal]
